APPROVED DRUG PRODUCT: PHERAZINE W/ CODEINE
Active Ingredient: CODEINE PHOSPHATE; PROMETHAZINE HYDROCHLORIDE
Strength: 10MG/5ML;6.25MG/5ML
Dosage Form/Route: SYRUP;ORAL
Application: A088739 | Product #001
Applicant: HALSEY DRUG CO INC
Approved: Dec 23, 1988 | RLD: No | RS: No | Type: DISCN